FAERS Safety Report 10218461 (Version 1)
Quarter: 2014Q2

REPORT INFORMATION
  Report Type: Spontaneous
  Country: GB (occurrence: GB)
  Receive Date: 20140605
  Receipt Date: 20140605
  Transmission Date: 20141212
  Serious: Yes (Life-Threatening, Hospitalization)
  Sender: FDA-Public Use
  Company Number: PHFR2014GB003921

PATIENT
  Sex: Female

DRUGS (18)
  1. CLOZAPINE [Suspect]
     Dosage: 300 MG
     Route: 048
  2. ATORVASTATIN [Concomitant]
     Dosage: UKN
  3. BUSCOPAN [Concomitant]
     Dosage: UKN
  4. CALCEOS [Concomitant]
     Dosage: UKN
  5. CHLORPROMAZINE [Concomitant]
     Dosage: UKN
  6. CO-CODAMOL [Concomitant]
     Dosage: UKN
  7. FERROUS SULPHATE [Concomitant]
     Dosage: UKN
  8. LOPERAMIDE [Concomitant]
     Dosage: UKN
  9. METFORMIN [Concomitant]
     Dosage: UKN
  10. NICORETTE TTS [Concomitant]
     Dosage: UKN
  11. OMEPRAZOLE [Concomitant]
     Dosage: UKN
  12. PROCYCLIDINE [Concomitant]
     Dosage: UKN
  13. SALBUTAMOL [Concomitant]
     Dosage: UKN
  14. SIMPLE LINCTUS [Concomitant]
     Dosage: UKN
  15. SODIUM VALPROATE [Concomitant]
     Dosage: UKN
  16. SYMBICORT [Concomitant]
     Dosage: UKN
  17. VENLAFAXINE [Concomitant]
     Dosage: UKN
  18. ARIPIPRAZOLE [Concomitant]
     Dosage: UKN

REACTIONS (3)
  - Respiratory arrest [Recovering/Resolving]
  - Cardiac arrest [Recovering/Resolving]
  - Pneumonia [Recovering/Resolving]
